FAERS Safety Report 6346763-X (Version None)
Quarter: 2009Q3

REPORT INFORMATION
  Report Type: 
  Country: None (occurrence: None)
  Receive Date: 20090904
  Receipt Date: 20090818
  Transmission Date: 20100115
  Serious: Yes (Hospitalization)
  Sender: FDA-Public Use
  Company Number: 2009SP020949

PATIENT
  Age: 75 Year
  Sex: Female

DRUGS (11)
  1. REMERON [Suspect]
     Indication: DRUG USE FOR UNKNOWN INDICATION
     Dosage: 15 MG; QD; PO
     Route: 048
     Dates: start: 20090425
  2. OXAZEPAM [Suspect]
     Indication: DRUG USE FOR UNKNOWN INDICATION
     Dosage: 15 MG; QD; PO
     Route: 048
  3. LORAZEPAM [Suspect]
     Indication: DRUG USE FOR UNKNOWN INDICATION
     Dosage: 1 MG; PRN; PO
     Route: 048
  4. DUROGESIC MATRIX (FENTANYL) [Suspect]
     Indication: DRUG USE FOR UNKNOWN INDICATION
     Dosage: 35 MCG; QH; CUT
     Route: 003
  5. NEXIUM /01479302/ (CON.) [Concomitant]
  6. DAFALGAN /00020001/ (CON.) [Concomitant]
  7. LYRICA (CON. [Concomitant]
  8. TORASEMID (CON.) [Concomitant]
  9. CLEXANE (CON.) [Concomitant]
  10. DOSPIR (CON.) [Concomitant]
  11. SERETIDE /01434201/ (CON.) [Concomitant]

REACTIONS (7)
  - ASPIRATION [None]
  - DEPRESSED LEVEL OF CONSCIOUSNESS [None]
  - HYPOTENSION [None]
  - LUNG INFILTRATION [None]
  - OXYGEN SATURATION DECREASED [None]
  - PYREXIA [None]
  - SEPTIC SHOCK [None]
